FAERS Safety Report 7545018-5 (Version None)
Quarter: 2011Q2

REPORT INFORMATION
  Report Type: 
  Country: None (occurrence: None)
  Receive Date: 20110614
  Receipt Date: 20110113
  Transmission Date: 20111010
  Serious: Yes (Hospitalization, Other)
  Sender: FDA-Public Use
  Company Number: US-BAYER-201038346NA

PATIENT
  Age: 49 Year
  Sex: Female
  Weight: 81.633 kg

DRUGS (11)
  1. EFFEXOR [Concomitant]
  2. EFFEXOR XR [Concomitant]
     Indication: DEPRESSION
     Dosage: 150 MG, CONT
     Dates: start: 20070727
  3. BENADRYL [Concomitant]
     Indication: PRURITUS
  4. PHENTERMINE [Concomitant]
     Indication: WEIGHT DECREASED
     Dosage: 37.5 MG, CONT
     Route: 048
     Dates: start: 20061026
  5. MIDRIN [Concomitant]
     Indication: TENSION HEADACHE
     Dosage: UNK UNK, Q4HR
     Route: 048
  6. DUONEB [Concomitant]
     Indication: WHEEZING
     Dosage: UNK
     Dates: start: 20080430
  7. EFFEXOR XR [Concomitant]
     Indication: ANXIETY
     Dosage: 225 MG, CONT
     Route: 048
     Dates: start: 20101018
  8. SIMVASTATIN [Concomitant]
     Dosage: 40 MG, PRN
     Route: 048
     Dates: start: 20101018
  9. YAZ [Suspect]
     Indication: CONTRACEPTION
     Dosage: UNK
     Route: 048
     Dates: start: 20060601, end: 20080615
  10. YAZ [Suspect]
     Indication: HEADACHE
     Dosage: UNK
     Dates: start: 20060701, end: 20070101
  11. PRILOSEC [Concomitant]
     Dosage: UNK
     Dates: start: 20071121

REACTIONS (6)
  - ABDOMINAL PAIN UPPER [None]
  - CHOLECYSTITIS [None]
  - CHOLELITHIASIS [None]
  - PAIN [None]
  - POST PROCEDURAL COMPLICATION [None]
  - POST PROCEDURAL BILE LEAK [None]
